FAERS Safety Report 7658990-X (Version None)
Quarter: 2011Q3

REPORT INFORMATION
  Report Type: 
  Country: None (occurrence: None)
  Receive Date: 20110805
  Receipt Date: 20110725
  Transmission Date: 20111222
  Serious: Yes (Other)
  Sender: FDA-Public Use
  Company Number: US-ELI_LILLY_AND_COMPANY-US201107007866

PATIENT
  Sex: Male

DRUGS (10)
  1. ABILIFY [Concomitant]
  2. LORCET-HD [Concomitant]
  3. BYSTOLIC [Concomitant]
     Indication: HYPERTENSION
  4. POTASSIUM [Concomitant]
  5. CYMBALTA [Suspect]
     Dosage: 60 MG, TID
     Route: 065
     Dates: start: 20110517
  6. FUROSEMIDE [Concomitant]
  7. CYMBALTA [Suspect]
     Indication: DEPRESSION
     Dosage: 60 MG, QD
     Route: 065
     Dates: start: 20110301
  8. TRAZODONE HCL [Concomitant]
  9. GLIMEPIRIDE [Concomitant]
  10. LISINOPRIL HYDROCHLORTHIAZID [Concomitant]

REACTIONS (4)
  - ABDOMINAL PAIN [None]
  - GALLBLADDER DISORDER [None]
  - OVERDOSE [None]
  - THROMBOSIS [None]
